FAERS Safety Report 6126089-X (Version None)
Quarter: 2009Q1

REPORT INFORMATION
  Report Type: 
  Country: None (occurrence: None)
  Receive Date: 20090320
  Receipt Date: 20090313
  Transmission Date: 20090719
  Serious: Yes (Other)
  Sender: FDA-Public Use
  Company Number: ES-GENENTECH-279260

PATIENT
  Age: 38 Year
  Sex: Female

DRUGS (1)
  1. RAPTIVA [Suspect]
     Indication: PSORIASIS
     Dosage: 0.7 ML, 1/WEEK
     Route: 058
     Dates: start: 20080201, end: 20080901

REACTIONS (1)
  - AMENORRHOEA [None]
